FAERS Safety Report 5278845-8 (Version None)
Quarter: 2007Q1

REPORT INFORMATION
  Report Type: 
  Country: None (occurrence: None)
  Receive Date: 20070328
  Receipt Date: 20070319
  Transmission Date: 20070707
  Serious: Yes (Hospitalization)
  Sender: FDA-Public Use
  Company Number: JP-JNJFOC-20070203302

PATIENT
  Age: 64 Year
  Sex: Male

DRUGS (6)
  1. FENTANYL [Suspect]
     Route: 062
  2. FENTANYL [Suspect]
     Indication: PAIN MANAGEMENT
     Route: 062
  3. RIFAMPICIN [Interacting]
     Indication: PULMONARY TUBERCULOSIS
     Route: 065
  4. ISONIAZID [Concomitant]
     Indication: PULMONARY TUBERCULOSIS
     Route: 065
  5. ETHAMBUTOL HYDROCHLORIDE [Concomitant]
     Indication: PULMONARY TUBERCULOSIS
     Route: 065
  6. LOXOPROFEN [Concomitant]
     Indication: PAIN MANAGEMENT
     Route: 065

REACTIONS (3)
  - BLOOD CREATININE INCREASED [None]
  - DRUG INEFFECTIVE [None]
  - DRUG INTERACTION [None]
